FAERS Safety Report 15018733 (Version 2)
Quarter: 2018Q4

REPORT INFORMATION
  Report Type: Spontaneous
  Country: FR (occurrence: FR)
  Receive Date: 20180616
  Receipt Date: 20181023
  Transmission Date: 20190204
  Serious: Yes (Death)
  Sender: FDA-Public Use
  Company Number: FR-ZYDUS-020043

PATIENT
  Age: 42 Year
  Sex: Female

DRUGS (1)
  1. TRAMADOL. [Suspect]
     Active Substance: TRAMADOL
     Indication: PRODUCT USED FOR UNKNOWN INDICATION
     Route: 048
     Dates: start: 201710, end: 201710

REACTIONS (2)
  - Cardiogenic shock [Fatal]
  - Coma [Fatal]

NARRATIVE: CASE EVENT DATE: 20171022
